FAERS Safety Report 14951034 (Version 5)
Quarter: 2022Q1

REPORT INFORMATION
  Report Type: Report from Study
  Country: US (occurrence: US)
  Receive Date: 20180530
  Receipt Date: 20220111
  Transmission Date: 20220423
  Serious: Yes (Life-Threatening, Hospitalization)
  Sender: FDA-Public Use
  Company Number: US-CELGENE-USA-20171211484

PATIENT
  Age: 40 Year
  Sex: Male
  Weight: 93 kg

DRUGS (100)
  1. ENASIDENIB [Suspect]
     Active Substance: ENASIDENIB
     Indication: Acute myeloid leukaemia
     Dosage: 100 MILLIGRAM
     Route: 048
     Dates: start: 20170817, end: 20171009
  2. ENASIDENIB [Suspect]
     Active Substance: ENASIDENIB
     Dosage: 100 MILLIGRAM
     Route: 048
     Dates: start: 20170817, end: 20171223
  3. ENASIDENIB [Suspect]
     Active Substance: ENASIDENIB
     Dosage: 100 MILLIGRAM
     Route: 048
     Dates: end: 20180108
  4. ENASIDENIB [Suspect]
     Active Substance: ENASIDENIB
     Dosage: 100 MILLIGRAM
     Route: 048
     Dates: start: 20180109, end: 20180121
  5. CYTARABINE [Suspect]
     Active Substance: CYTARABINE
     Indication: Acute myeloid leukaemia
     Dosage: 6120 MILLIGRAM
     Route: 041
     Dates: start: 20170817, end: 20171215
  6. DAUNORUBICIN [Suspect]
     Active Substance: DAUNORUBICIN
     Indication: Acute myeloid leukaemia
     Dosage: 120 MILLIGRAM
     Route: 041
     Dates: start: 20170817, end: 20170904
  7. ACETAMINOPHEN [Concomitant]
     Active Substance: ACETAMINOPHEN
     Indication: Pyrexia
     Route: 048
     Dates: start: 20171219, end: 20171219
  8. ACETAMINOPHEN [Concomitant]
     Active Substance: ACETAMINOPHEN
     Route: 048
     Dates: start: 20171224, end: 20180103
  9. ACYCLOVIR [Concomitant]
     Active Substance: ACYCLOVIR
     Indication: Viral infection
     Dosage: 600 MILLIGRAM
     Route: 048
     Dates: start: 20171010
  10. ACYCLOVIR [Concomitant]
     Active Substance: ACYCLOVIR
     Indication: Prophylaxis
     Dosage: 10 MILLIGRAM/KILOGRAM
     Route: 041
  11. ACYCLOVIR [Concomitant]
     Active Substance: ACYCLOVIR
     Dosage: 10 MILLIGRAM/KILOGRAM
     Route: 041
     Dates: start: 20171225
  12. ACYCLOVIR [Concomitant]
     Active Substance: ACYCLOVIR
     Dosage: 800 MILLIGRAM
     Route: 065
     Dates: start: 2018
  13. ACYCLOVIR [Concomitant]
     Active Substance: ACYCLOVIR
     Route: 041
     Dates: start: 20171224, end: 20171225
  14. CETIRIZINE [Concomitant]
     Active Substance: CETIRIZINE HYDROCHLORIDE
     Indication: Multiple allergies
     Route: 048
     Dates: start: 20170927
  15. CHLORHEXIDINE [Concomitant]
     Active Substance: CHLORHEXIDINE
     Indication: Bacterial infection
     Route: 048
     Dates: start: 20170926
  16. CHLORHEXIDINE [Concomitant]
     Active Substance: CHLORHEXIDINE
     Dosage: 30 MILLILITER
     Route: 048
  17. DEXAMETHASONE [Concomitant]
     Active Substance: DEXAMETHASONE
     Indication: Dry eye
     Dosage: .1 PERCENT
     Route: 047
     Dates: start: 20171210, end: 20171217
  18. DEXAMETHASONE [Concomitant]
     Active Substance: DEXAMETHASONE
     Indication: Inflammation
     Route: 048
     Dates: start: 20171210, end: 20171210
  19. DEXAMETHASONE [Concomitant]
     Active Substance: DEXAMETHASONE
     Route: 048
     Dates: start: 20171212, end: 20171212
  20. DEXAMETHASONE [Concomitant]
     Active Substance: DEXAMETHASONE
     Route: 048
     Dates: start: 20171214, end: 20171214
  21. DIPHENHYDRAMINE [Concomitant]
     Active Substance: DIPHENHYDRAMINE
     Indication: Hypersensitivity
     Route: 048
     Dates: start: 20171219, end: 20171219
  22. DIPHENHYDRAMINE [Concomitant]
     Active Substance: DIPHENHYDRAMINE
     Route: 041
     Dates: start: 20171224, end: 20171224
  23. DIPHENHYDRAMINE [Concomitant]
     Active Substance: DIPHENHYDRAMINE
     Route: 041
     Dates: start: 20171226, end: 20171226
  24. DIPHENHYDRAMINE [Concomitant]
     Active Substance: DIPHENHYDRAMINE
     Route: 041
     Dates: start: 20171228, end: 20171229
  25. DIPHENHYDRAMINE [Concomitant]
     Active Substance: DIPHENHYDRAMINE
     Route: 041
     Dates: start: 20171231, end: 20180103
  26. DOCUSATE [Concomitant]
     Active Substance: DOCUSATE
     Indication: Constipation
     Route: 048
     Dates: start: 20170811
  27. ENOXAPARIN [Concomitant]
     Active Substance: ENOXAPARIN
     Indication: Thrombosis
     Route: 058
     Dates: start: 20171219, end: 20180103
  28. FILGRASTIM [Concomitant]
     Active Substance: FILGRASTIM
     Indication: Leukopenia
     Route: 058
     Dates: start: 20171010, end: 20171211
  29. FILGRASTIM [Concomitant]
     Active Substance: FILGRASTIM
     Route: 058
     Dates: start: 20171216, end: 20180227
  30. FLUCONAZOLE [Concomitant]
     Active Substance: FLUCONAZOLE
     Indication: Fungal infection
     Dosage: 200 MILLIGRAM
     Route: 048
     Dates: start: 20170927, end: 20180103
  31. FLUCONAZOLE [Concomitant]
     Active Substance: FLUCONAZOLE
     Indication: Prophylaxis
     Dosage: 400 MILLIGRAM
     Route: 048
  32. FLUCONAZOLE [Concomitant]
     Active Substance: FLUCONAZOLE
     Dosage: 200 MILLIGRAM
     Route: 065
     Dates: start: 2018
  33. FLUTICASONE [Concomitant]
     Active Substance: FLUTICASONE
     Indication: Multiple allergies
     Route: 045
     Dates: start: 20170912
  34. LEVOFLOXACIN [Concomitant]
     Active Substance: LEVOFLOXACIN
     Indication: Bacterial infection
     Dosage: 750 MILLIGRAM
     Route: 048
     Dates: start: 20171010
  35. LEVOFLOXACIN [Concomitant]
     Active Substance: LEVOFLOXACIN
     Indication: Pneumonia moraxella
     Route: 048
     Dates: start: 20171201, end: 20171211
  36. LEVOFLOXACIN [Concomitant]
     Active Substance: LEVOFLOXACIN
     Dosage: 750 MILLIGRAM
     Route: 065
     Dates: start: 2018, end: 20180112
  37. LEVOFLOXACIN [Concomitant]
     Active Substance: LEVOFLOXACIN
     Route: 048
     Dates: start: 20180102, end: 20180215
  38. MELATONIN [Concomitant]
     Active Substance: MELATONIN
     Indication: Insomnia
     Route: 048
     Dates: start: 20170912, end: 20171206
  39. MELATONIN [Concomitant]
     Active Substance: MELATONIN
     Route: 048
     Dates: start: 20171226, end: 20171227
  40. MELATONIN [Concomitant]
     Active Substance: MELATONIN
     Route: 048
     Dates: start: 20171229, end: 20180102
  41. METRONIDAZOLE [Concomitant]
     Active Substance: METRONIDAZOLE
     Indication: Bacterial infection
     Dosage: 500 MILLIGRAM
     Route: 048
     Dates: start: 20171213, end: 20171213
  42. METRONIDAZOLE [Concomitant]
     Active Substance: METRONIDAZOLE
     Indication: Clostridium difficile infection
     Dosage: 500 MILLIGRAM
     Route: 041
  43. METRONIDAZOLE [Concomitant]
     Active Substance: METRONIDAZOLE
     Indication: Diarrhoea
     Dosage: 500 MILLIGRAM
     Route: 065
     Dates: start: 2018
  44. METRONIDAZOLE [Concomitant]
     Active Substance: METRONIDAZOLE
     Indication: Abdominal pain
     Route: 048
     Dates: start: 20171227, end: 20180113
  45. METRONIDAZOLE [Concomitant]
     Active Substance: METRONIDAZOLE
     Route: 041
     Dates: start: 20171224, end: 20171226
  46. ENSURE COMPLETE [Concomitant]
     Indication: Nutritional supplementation
     Dosage: 0.04-1.05 GRAM-KCAL/ML
     Route: 048
     Dates: start: 20171102, end: 20171201
  47. ENSURE COMPLETE [Concomitant]
     Route: 048
     Dates: start: 20171204
  48. ENSURE COMPLETE [Concomitant]
     Dosage: 0.04-1.05 GRAM-KCAL/ML
     Route: 065
     Dates: start: 2018
  49. ONDANSETRON [Concomitant]
     Active Substance: ONDANSETRON
     Indication: Nausea
     Dosage: 4 MILLIGRAM
     Route: 048
     Dates: start: 20171210, end: 20171210
  50. ONDANSETRON [Concomitant]
     Active Substance: ONDANSETRON
     Route: 048
     Dates: start: 20171212, end: 20171212
  51. ONDANSETRON [Concomitant]
     Active Substance: ONDANSETRON
     Route: 048
     Dates: start: 20171214, end: 20171214
  52. ONDANSETRON [Concomitant]
     Active Substance: ONDANSETRON
     Dosage: 4 MILLIGRAM
     Route: 065
     Dates: start: 2018
  53. ONDANSETRON [Concomitant]
     Active Substance: ONDANSETRON
     Route: 048
     Dates: start: 20171225, end: 20180103
  54. ONDANSETRON [Concomitant]
     Active Substance: ONDANSETRON
     Route: 048
     Dates: start: 20180102
  55. SENNA [Concomitant]
     Active Substance: SENNA LEAF\SENNOSIDES\SENNOSIDES A AND B
     Indication: Constipation
     Route: 048
     Dates: start: 20170811, end: 20171206
  56. SODIUM CHLORIDE [Concomitant]
     Active Substance: SODIUM CHLORIDE
     Indication: Dehydration
     Dosage: .9 PERCENT
     Route: 041
     Dates: start: 20171210, end: 20171215
  57. SODIUM CHLORIDE [Concomitant]
     Active Substance: SODIUM CHLORIDE
     Dosage: .9 PERCENT
     Route: 041
     Dates: start: 20171219, end: 20171219
  58. SODIUM CHLORIDE [Concomitant]
     Active Substance: SODIUM CHLORIDE
     Dosage: 20 MILLILITER
     Route: 065
  59. SODIUM CHLORIDE [Concomitant]
     Active Substance: SODIUM CHLORIDE
     Dosage: 15 MILLILITER
     Route: 065
  60. SODIUM CHLORIDE [Concomitant]
     Active Substance: SODIUM CHLORIDE
     Dosage: 0-250ML
     Route: 041
  61. SODIUM CHLORIDE [Concomitant]
     Active Substance: SODIUM CHLORIDE
     Route: 041
     Dates: start: 20171224, end: 20171226
  62. SODIUM CHLORIDE [Concomitant]
     Active Substance: SODIUM CHLORIDE
     Route: 041
     Dates: start: 20171228, end: 20171229
  63. SODIUM CHLORIDE [Concomitant]
     Active Substance: SODIUM CHLORIDE
     Route: 041
     Dates: start: 20171231, end: 20180103
  64. OXYCODONE [Concomitant]
     Active Substance: OXYCODONE
     Indication: Pain
     Dosage: 10 MILLIGRAM
     Route: 048
     Dates: start: 20180108, end: 20180112
  65. OXYCODONE [Concomitant]
     Active Substance: OXYCODONE
     Indication: Prophylaxis
     Route: 048
     Dates: start: 20171204, end: 20180227
  66. IBUPROFEN [Concomitant]
     Active Substance: IBUPROFEN
     Indication: Pain
     Dosage: 2400 MILLIGRAM
     Route: 065
     Dates: start: 20180113, end: 20180119
  67. ENASIDENIB [Concomitant]
     Active Substance: ENASIDENIB
     Indication: Product used for unknown indication
     Dosage: 100 MILLIGRAM
     Route: 048
  68. AMPICILLIN [Concomitant]
     Active Substance: AMPICILLIN
     Indication: Sepsis
     Dosage: 12 GRAM
     Route: 041
  69. AMPICILLIN [Concomitant]
     Active Substance: AMPICILLIN
     Route: 041
     Dates: start: 20170924, end: 20171225
  70. CEFEPIME [Concomitant]
     Active Substance: CEFEPIME HYDROCHLORIDE
     Indication: Product used for unknown indication
     Dosage: 6 GRAM
     Route: 041
  71. CEFEPIME [Concomitant]
     Active Substance: CEFEPIME HYDROCHLORIDE
     Route: 041
     Dates: start: 20171224, end: 20180101
  72. IOHEXOL [Concomitant]
     Active Substance: IOHEXOL
     Indication: Premedication
     Dosage: 110 MILLILITER
     Route: 041
     Dates: start: 20171224, end: 20171224
  73. IOHEXOL [Concomitant]
     Active Substance: IOHEXOL
     Dosage: 50 MILLILITER
     Route: 048
     Dates: start: 20171224
  74. HUMAN RED BLOOD CELL [Concomitant]
     Active Substance: HUMAN RED BLOOD CELL
     Indication: Pancytopenia
     Dosage: 2 IU (INTERNATIONAL UNIT) UP TO 9.1
     Route: 065
     Dates: start: 20180113
  75. CITRIC ACID [Concomitant]
     Active Substance: CITRIC ACID MONOHYDRATE
     Indication: Skin laceration
     Route: 065
  76. MAGNESIUM SULFATE [Concomitant]
     Active Substance: MAGNESIUM SULFATE
     Indication: Blood magnesium decreased
     Route: 041
     Dates: start: 20171224, end: 20171224
  77. MAGNESIUM SULFATE [Concomitant]
     Active Substance: MAGNESIUM SULFATE
     Route: 041
     Dates: start: 20180101, end: 20180101
  78. EPINEPHRINE\LIDOCAINE [Concomitant]
     Active Substance: EPINEPHRINE\LIDOCAINE
     Indication: Anaesthesia
     Dosage: 2 PERCENT
     Route: 058
     Dates: start: 20180103, end: 20180103
  79. EPINEPHRINE\LIDOCAINE [Concomitant]
     Active Substance: EPINEPHRINE\LIDOCAINE
     Dosage: 2 PERCENT
     Route: 061
     Dates: start: 20180103, end: 20180103
  80. LIDOCAINE [Concomitant]
     Active Substance: LIDOCAINE
     Indication: Local anaesthesia
     Dosage: 1 PERCENT
     Route: 065
     Dates: start: 20171229, end: 20171229
  81. LACTATED RINGERS SOLUTION [Concomitant]
     Active Substance: CALCIUM CHLORIDE\POTASSIUM CHLORIDE\SODIUM CHLORIDE\SODIUM LACTATE
     Indication: Dehydration
     Route: 041
     Dates: start: 20171224, end: 20171224
  82. INFLUENZA VIRUS VACCINE [Concomitant]
     Active Substance: INFLUENZA VIRUS VACCINE
     Indication: Influenza
     Route: 030
     Dates: start: 20170317, end: 20171227
  83. SOLU-CORTEF [Concomitant]
     Active Substance: HYDROCORTISONE SODIUM SUCCINATE
     Indication: Infusion related reaction
     Route: 041
     Dates: start: 20180101, end: 20180101
  84. MUCINEX [Concomitant]
     Active Substance: GUAIFENESIN
     Indication: Cough
     Route: 048
     Dates: start: 20171227
  85. FUROSEMIDE [Concomitant]
     Active Substance: FUROSEMIDE
     Indication: Oedema
     Route: 041
     Dates: start: 20171230, end: 20171231
  86. FENTANYL [Concomitant]
     Active Substance: FENTANYL
     Indication: Pain
     Route: 041
     Dates: start: 20171229, end: 20171229
  87. FAMOTIDINE [Concomitant]
     Active Substance: FAMOTIDINE
     Indication: Infusion related reaction
     Route: 041
     Dates: start: 20180101, end: 20180102
  88. CIPROFLOXACIN [Concomitant]
     Active Substance: CIPROFLOXACIN
     Indication: Sepsis
     Route: 048
     Dates: start: 20180101, end: 20180102
  89. CEFTRIAXONE [Concomitant]
     Active Substance: CEFTRIAXONE
     Indication: Sepsis
     Route: 041
     Dates: start: 20180101, end: 20180102
  90. CALCIUM GLUCONATE [Concomitant]
     Active Substance: CALCIUM GLUCONATE
     Indication: Blood calcium decreased
     Dosage: 10 PERCENT
     Route: 041
     Dates: start: 20171225, end: 20171225
  91. AMBISOME [Concomitant]
     Active Substance: AMPHOTERICIN B
     Indication: Sepsis
     Route: 041
     Dates: start: 20171224, end: 20171224
  92. MIRALAX [Concomitant]
     Active Substance: POLYETHYLENE GLYCOL 3350
     Indication: Constipation
     Route: 048
     Dates: start: 20171231, end: 20171231
  93. PANTOPRAZOLE [Concomitant]
     Active Substance: PANTOPRAZOLE
     Indication: Gastrooesophageal reflux disease
     Route: 048
     Dates: start: 20171226, end: 20180103
  94. TOBRAMYCIN [Concomitant]
     Active Substance: TOBRAMYCIN
     Indication: Sepsis
     Route: 041
     Dates: start: 20171224, end: 20171224
  95. CETACAINE ANESTHETIC [Concomitant]
     Active Substance: BENZOCAINE\BUTAMBEN\TETRACAINE HYDROCHLORIDE
     Indication: Local anaesthesia
     Route: 061
     Dates: start: 20171229, end: 20171229
  96. DIMETHICONE [Concomitant]
     Active Substance: DIMETHICONE
     Indication: Abdominal pain
     Route: 048
     Dates: start: 20171226, end: 20171227
  97. POSACONAZOLE [Concomitant]
     Active Substance: POSACONAZOLE
     Indication: Nail infection
     Route: 048
     Dates: start: 20171226, end: 20180102
  98. MIDAZOLAM [Concomitant]
     Active Substance: MIDAZOLAM
     Indication: Sedation
     Route: 041
     Dates: start: 20171229, end: 20171229
  99. MIDAZOLAM [Concomitant]
     Active Substance: MIDAZOLAM
     Route: 041
     Dates: start: 20180103, end: 20180103
  100. MICONAZOLE [Concomitant]
     Active Substance: MICONAZOLE
     Indication: Nail infection
     Dosage: 2 PERCENT
     Route: 061
     Dates: start: 20171228

REACTIONS (3)
  - Lymphadenopathy [Recovered/Resolved]
  - Sepsis [Recovered/Resolved]
  - Scrotal infection [Recovered/Resolved]

NARRATIVE: CASE EVENT DATE: 20171224
